FAERS Safety Report 4565480-X (Version None)
Quarter: 2005Q1

REPORT INFORMATION
  Report Type: 
  Country: None (occurrence: None)
  Receive Date: 20050126
  Receipt Date: 20050110
  Transmission Date: 20050727
  Serious: Yes (Death)
  Sender: FDA-Public Use
  Company Number: USA050187545

PATIENT
  Age: 54 Year
  Sex: Male

DRUGS (1)
  1. FORTEO [Suspect]
     Indication: JOINT INJURY
     Dosage: 20 UG/2 DAY
     Dates: start: 20040101

REACTIONS (3)
  - ADENOIDECTOMY [None]
  - MYOCARDIAL INFARCTION [None]
  - TONSILLECTOMY [None]
